FAERS Safety Report 4487245-X (Version None)
Quarter: 2004Q4

REPORT INFORMATION
  Report Type: 
  Country: None (occurrence: None)
  Receive Date: 20041022
  Receipt Date: 20041006
  Transmission Date: 20050328
  Serious: Yes (Hospitalization, Disabling)
  Sender: FDA-Public Use
  Company Number: DSA_24832_2004

PATIENT
  Age: 53 Year
  Sex: Female

DRUGS (11)
  1. TEMESTA [Suspect]
     Indication: ANXIETY
     Dosage: 1 MG PRN PO
     Route: 048
  2. DILTIAZEM HCL [Suspect]
     Indication: HYPERTENSION
     Dosage: 180 MG QD PO
     Route: 048
  3. EFFEXOR [Suspect]
     Indication: DEPRESSION
     Dosage: 150 MG QD PO
     Route: 048
  4. ZOLOFT [Suspect]
     Indication: DEPRESSION
     Dosage: 50 MG QD PO
     Route: 048
     Dates: start: 20020101
  5. ACETYLSALICYLIC ACID [Concomitant]
  6. OMEPRAZOLE [Concomitant]
  7. CELEBREX [Concomitant]
  8. MEFENAMIC ACID [Concomitant]
  9. GINSENG [Concomitant]
  10. ATORVASTATIN CALCIUM [Concomitant]
  11. PERFALGAN [Concomitant]

REACTIONS (5)
  - DRUG INTERACTION [None]
  - FACIAL PALSY [None]
  - GAIT DISTURBANCE [None]
  - NEUROSYPHILIS [None]
  - SEROTONIN SYNDROME [None]
